FAERS Safety Report 15093407 (Version 2)
Quarter: 2018Q3

REPORT INFORMATION
  Report Type: Spontaneous
  Country: US (occurrence: US)
  Receive Date: 20180629
  Receipt Date: 20180706
  Transmission Date: 20181010
  Serious: No
  Sender: FDA-Public Use
  Company Number: US-BAYER-2018-120949

PATIENT
  Sex: Female

DRUGS (1)
  1. FINACEA [Suspect]
     Active Substance: AZELAIC ACID
     Indication: RASH PAPULAR
     Dosage: TWICE A DAY, DO IT EVERY OTHER DAY
     Route: 061
     Dates: start: 201806

REACTIONS (3)
  - Pain of skin [None]
  - Burning sensation [None]
  - Product prescribing issue [None]
